FAERS Safety Report 20069564 (Version 1)
Quarter: 2021Q4

REPORT INFORMATION
  Report Type: Spontaneous
  Country: US (occurrence: US)
  Receive Date: 20211115
  Receipt Date: 20211115
  Transmission Date: 20220303
  Serious: No
  Sender: FDA-Public Use
  Company Number: US-OptiNose US, Inc-2021OPT000059

PATIENT
  Age: 51 Year
  Sex: Female

DRUGS (1)
  1. XHANCE [Suspect]
     Active Substance: FLUTICASONE PROPIONATE
     Indication: Multiple allergies
     Dosage: 1 TO 2 (186 TO 372 MICROGRAMS) SPRAYS EACH NOSTRIL
     Route: 045
     Dates: start: 2020

REACTIONS (4)
  - Skin laceration [Unknown]
  - Wound haemorrhage [Recovered/Resolved]
  - Product container issue [Unknown]
  - Product use in unapproved indication [Not Recovered/Not Resolved]

NARRATIVE: CASE EVENT DATE: 20210202
